FAERS Safety Report 8594218-4 (Version None)
Quarter: 2012Q3

REPORT INFORMATION
  Report Type: 
  Country: None (occurrence: None)
  Receive Date: 20120814
  Receipt Date: 20110926
  Transmission Date: 20120928
  Serious: Yes (Death)
  Sender: FDA-Public Use
  Company Number: PHEH2011US013206

PATIENT
  Sex: Female

DRUGS (5)
  1. FEMARA [Suspect]
     Dosage: 2.5 MG, QD
     Dates: start: 20100423
  2. VICODIN [Concomitant]
  3. PROCHLORPERAZINE [Concomitant]
  4. LISINOPRIL [Concomitant]
  5. KLOR-CON [Concomitant]

REACTIONS (1)
  - DEATH [None]
